FAERS Safety Report 6631053-8 (Version None)
Quarter: 2010Q1

REPORT INFORMATION
  Report Type: 
  Country: None (occurrence: None)
  Receive Date: 20100309
  Receipt Date: 20100223
  Transmission Date: 20100710
  Serious: Yes (Hospitalization)
  Sender: FDA-Public Use
  Company Number: 2010SP000280

PATIENT
  Age: 66 Year
  Sex: Female
  Weight: 63.5 kg

DRUGS (18)
  1. XOPENEX HFA [Suspect]
     Indication: EMPHYSEMA
     Dosage: PRN;INHALATION ; PRN;INHALATION ; PRN;INHALATION ; PRN;INHALATION
     Route: 055
     Dates: end: 20100121
  2. XOPENEX HFA [Suspect]
     Indication: EMPHYSEMA
     Dosage: PRN;INHALATION ; PRN;INHALATION ; PRN;INHALATION ; PRN;INHALATION
     Route: 055
     Dates: start: 20100122, end: 20100123
  3. XOPENEX HFA [Suspect]
     Indication: EMPHYSEMA
     Dosage: PRN;INHALATION ; PRN;INHALATION ; PRN;INHALATION ; PRN;INHALATION
     Route: 055
     Dates: start: 20070101
  4. XOPENEX HFA [Suspect]
     Indication: EMPHYSEMA
     Dosage: PRN;INHALATION ; PRN;INHALATION ; PRN;INHALATION ; PRN;INHALATION
     Route: 055
     Dates: start: 20100123
  5. XOPENEX [Suspect]
  6. THERAGRAN /00554301/ [Concomitant]
  7. HORMONES NOS [Concomitant]
  8. MULTI-VITAMINS [Concomitant]
  9. LOZOL [Concomitant]
  10. COREG [Concomitant]
  11. PROTONIX /01263201/ [Concomitant]
  12. ASPIRIN [Concomitant]
  13. DIOVAN /01319601/ [Concomitant]
  14. METFORMIN HCL [Concomitant]
  15. SITAGLIPTIN [Concomitant]
  16. PREVACID [Concomitant]
  17. ZOCOR [Concomitant]
  18. CORTISONE ACETATE [Concomitant]

REACTIONS (25)
  - ASTHENIA [None]
  - BLOOD GLUCOSE INCREASED [None]
  - BRONCHITIS [None]
  - CARDIOMEGALY [None]
  - CARDIOMYOPATHY [None]
  - CHEST DISCOMFORT [None]
  - CHRONIC OBSTRUCTIVE PULMONARY DISEASE [None]
  - CONDITION AGGRAVATED [None]
  - CORONARY ARTERY DISEASE [None]
  - DRUG INEFFECTIVE [None]
  - EJECTION FRACTION DECREASED [None]
  - ELECTROCARDIOGRAM ST-T CHANGE [None]
  - EMPHYSEMA [None]
  - EYES SUNKEN [None]
  - FATIGUE [None]
  - HEADACHE [None]
  - HYPOKINESIA [None]
  - MITRAL VALVE INCOMPETENCE [None]
  - OEDEMA PERIPHERAL [None]
  - PALPITATIONS [None]
  - PERICARDIAL EFFUSION [None]
  - PRODUCT QUALITY ISSUE [None]
  - RESPIRATORY DISTRESS [None]
  - SINUS TACHYCARDIA [None]
  - VENTRICULAR TACHYCARDIA [None]
